FAERS Safety Report 8179295-7 (Version None)
Quarter: 2012Q1

REPORT INFORMATION
  Report Type: 
  Country: None (occurrence: None)
  Receive Date: 20120229
  Receipt Date: 20120229
  Transmission Date: 20120608
  Serious: Yes (Other)
  Sender: FDA-Public Use
  Company Number: None

PATIENT
  Age: 55 Year
  Sex: Female

DRUGS (1)
  1. LIOTHYRONINE SODIUM [Suspect]
     Indication: TRI-IODOTHYRONINE DECREASED
     Dosage: 5 MCG BID VARIOUS ATTEMPTS TO USE PRODUCT OVER A FEW YEARS

REACTIONS (4)
  - PURULENCE [None]
  - PAIN [None]
  - HYPERSENSITIVITY [None]
  - RASH [None]
